FAERS Safety Report 12669278 (Version 1)
Quarter: 2016Q3

REPORT INFORMATION
  Report Type: Spontaneous
  Country: FR (occurrence: FR)
  Receive Date: 20160819
  Receipt Date: 20160819
  Transmission Date: 20161109
  Serious: Yes (Death, Hospitalization, Other)
  Sender: FDA-Public Use
  Company Number: FR-ASTELLAS-2016US031881

PATIENT
  Age: 62 Year
  Sex: Female

DRUGS (3)
  1. MYCOPHENOLATE MOFETIL. [Suspect]
     Active Substance: MYCOPHENOLATE MOFETIL
     Indication: LIVER TRANSPLANT
     Dosage: UNK UNK, UNKNOWN FREQ.
     Route: 065
  2. PREDNISONE. [Suspect]
     Active Substance: PREDNISONE
     Indication: LIVER TRANSPLANT
     Dosage: UNK, UNKNOWN FREQ.
     Route: 065
  3. TACROLIMUS. [Suspect]
     Active Substance: TACROLIMUS
     Indication: LIVER TRANSPLANT
     Dosage: UNK UNK, UNKNOWN FREQ.
     Route: 065

REACTIONS (16)
  - Metabolic disorder [Unknown]
  - Coagulopathy [Unknown]
  - Respiratory acidosis [Unknown]
  - Hypercapnia [Unknown]
  - Aspergillus infection [Unknown]
  - Cytomegalovirus infection [Unknown]
  - Respiratory failure [Unknown]
  - Toxoplasmosis [Unknown]
  - Lung disorder [Unknown]
  - Death [Fatal]
  - Circulatory collapse [Unknown]
  - Systemic inflammatory response syndrome [Unknown]
  - Pulmonary oedema [Unknown]
  - Renal failure [Unknown]
  - Hypoxia [Unknown]
  - Multiple organ dysfunction syndrome [Unknown]
